FAERS Safety Report 5350449-8 (Version None)
Quarter: 2007Q2

REPORT INFORMATION
  Report Type: 
  Country: None (occurrence: None)
  Receive Date: 20070608
  Receipt Date: 20070528
  Transmission Date: 20071010
  Serious: No
  Sender: FDA-Public Use
  Company Number: PHMT2007CA01225

PATIENT
  Age: 76 Year
  Sex: Female
  Weight: 110 kg

DRUGS (1)
  1. ZOMETA [Suspect]
     Indication: BREAST CANCER
     Dosage: 4 MG EVERY 4 WEEKS
     Route: 042
     Dates: start: 20060310

REACTIONS (4)
  - GINGIVAL ABSCESS [None]
  - GINGIVAL PAIN [None]
  - ORAL PAIN [None]
  - WEIGHT DECREASED [None]
